APPROVED DRUG PRODUCT: GABAPENTIN
Active Ingredient: GABAPENTIN
Strength: 100MG
Dosage Form/Route: CAPSULE;ORAL
Application: A213603 | Product #001 | TE Code: AB
Applicant: ZHEJIANG YONGTAI PHARMACEUTICAL CO LTD
Approved: Aug 17, 2020 | RLD: No | RS: No | Type: RX